FAERS Safety Report 18507089 (Version 3)
Quarter: 2021Q1

REPORT INFORMATION
  Report Type: Report from Study
  Country: US (occurrence: US)
  Receive Date: 20201116
  Receipt Date: 20210204
  Transmission Date: 20210419
  Serious: Yes (Other)
  Sender: FDA-Public Use
  Company Number: US-ASTELLAS-2020US030120

PATIENT
  Age: 67 Year
  Sex: Male

DRUGS (4)
  1. TRAZODONE [Interacting]
     Active Substance: TRAZODONE HYDROCHLORIDE
     Indication: PRODUCT USED FOR UNKNOWN INDICATION
     Dosage: UNK UNK, UNKNOWN FREQ.
     Route: 065
  2. AMLODIPINE [Interacting]
     Active Substance: AMLODIPINE BESYLATE
     Indication: PRODUCT USED FOR UNKNOWN INDICATION
     Dosage: UNK UNK, UNKNOWN FREQ.
     Route: 065
  3. ENZALUTAMIDE [Interacting]
     Active Substance: ENZALUTAMIDE
     Dosage: 80 MG, TWICE DAILY (2CAPSULES IN THE MORNING AND 2 AT NIGHT)
     Route: 048
     Dates: start: 201912
  4. ENZALUTAMIDE [Suspect]
     Active Substance: ENZALUTAMIDE
     Indication: PROSTATE CANCER
     Dosage: 160 MG, ONCE DAILY (IN MORNING)
     Route: 048
     Dates: start: 201911

REACTIONS (10)
  - Abdominal pain upper [Recovered/Resolved]
  - Blood pressure abnormal [Unknown]
  - Off label use [Unknown]
  - Blood cholesterol abnormal [Unknown]
  - Polyarthritis [Unknown]
  - Diarrhoea [Unknown]
  - Drug interaction [Unknown]
  - Heart rate irregular [Unknown]
  - Insomnia [Unknown]
  - Abdominal discomfort [Recovered/Resolved]

NARRATIVE: CASE EVENT DATE: 201911
